FAERS Safety Report 24206830 (Version 2)
Quarter: 2024Q3

REPORT INFORMATION
  Report Type: Report from Study
  Country: KR (occurrence: KR)
  Receive Date: 20240813
  Receipt Date: 20240820
  Transmission Date: 20241017
  Serious: Yes (Hospitalization)
  Sender: JAZZ
  Company Number: KR-BR-2024-0201

PATIENT
  Age: 68 Year
  Sex: Male
  Weight: 62.8 kg

DRUGS (22)
  1. LURBINECTEDIN [Suspect]
     Active Substance: LURBINECTEDIN
     Indication: Product used for unknown indication
     Dosage: 2.6 MILLIGRAM/SQ. METER, Q3W
     Route: 042
     Dates: start: 20240709, end: 20240709
  2. NALOXONE HYDROCHLORIDE\OXYCODONE HYDROCHLORIDE [Concomitant]
     Active Substance: NALOXONE HYDROCHLORIDE\OXYCODONE HYDROCHLORIDE
     Indication: Product used for unknown indication
     Dosage: UNK
     Dates: start: 20230315
  3. ACETAMINOPHEN [Concomitant]
     Active Substance: ACETAMINOPHEN
     Indication: Product used for unknown indication
     Dosage: UNK
     Dates: start: 20230315
  4. LYRICA [Concomitant]
     Active Substance: PREGABALIN
     Indication: Product used for unknown indication
     Dosage: UNK
     Dates: start: 20230318
  5. FENTORA [Concomitant]
     Active Substance: FENTANYL CITRATE
     Indication: Product used for unknown indication
     Dosage: UNK
     Dates: start: 20230308
  6. SCD MAGNESIUM OXIDE [Concomitant]
     Indication: Product used for unknown indication
     Dosage: UNK
     Dates: start: 20231215
  7. NORZYME [Concomitant]
     Indication: Product used for unknown indication
     Dosage: UNK
     Dates: start: 20230317
  8. GASMOTIN SR [Concomitant]
     Indication: Product used for unknown indication
     Dosage: UNK
     Dates: start: 20230912
  9. KI CAB [Concomitant]
     Indication: Product used for unknown indication
     Dosage: UNK
     Dates: start: 20231117
  10. TRIAZOLAM [Concomitant]
     Active Substance: TRIAZOLAM
     Indication: Product used for unknown indication
     Dosage: UNK
     Dates: start: 20180425
  11. DULACKHAN [Concomitant]
     Indication: Product used for unknown indication
     Dosage: UNK
     Dates: start: 20230308
  12. SOLONDO [ISOTRETINOIN] [Concomitant]
     Indication: Product used for unknown indication
     Dosage: UNK
     Dates: start: 20231129
  13. REBAMIPIDE [Concomitant]
     Active Substance: REBAMIPIDE
     Indication: Product used for unknown indication
     Dosage: UNK
     Dates: start: 20231129
  14. SYNTHROID [Concomitant]
     Active Substance: LEVOTHYROXINE SODIUM
     Indication: Hypothyroidism
     Dosage: UNK
     Dates: start: 20180425
  15. TICAGRELOR [Concomitant]
     Active Substance: TICAGRELOR
     Indication: Diabetes mellitus
     Dosage: UNK
     Dates: start: 20180425
  16. LIVALO [Concomitant]
     Active Substance: PITAVASTATIN CALCIUM
     Indication: Hyperlipidaemia
     Dosage: UNK
     Dates: start: 20180425
  17. VILDAGLIPTIN [Concomitant]
     Active Substance: VILDAGLIPTIN
     Indication: Diabetes mellitus
     Dosage: UNK
     Dates: start: 20180425
  18. GLICLAZIDE [Concomitant]
     Active Substance: GLICLAZIDE
     Indication: Diabetes mellitus
     Dosage: UNK
  19. YUHAN DEXAMETHASONE DISODIUM PHOSPHATE [Concomitant]
     Indication: Product used for unknown indication
     Dosage: UNK
     Dates: start: 20240709, end: 20240709
  20. DONG A GASTER [Concomitant]
     Indication: Product used for unknown indication
     Dosage: UNK
     Dates: start: 20240709, end: 20240709
  21. PENIRAMIN [Concomitant]
     Indication: Product used for unknown indication
     Dosage: UNK
     Dates: start: 20240709, end: 20240709
  22. ALOXI [Concomitant]
     Active Substance: PALONOSETRON HYDROCHLORIDE
     Indication: Product used for unknown indication
     Dosage: UNK
     Dates: start: 20240709, end: 20240709

REACTIONS (1)
  - Asthenia [Recovered/Resolved]

NARRATIVE: CASE EVENT DATE: 20240801
